FAERS Safety Report 25202325 (Version 2)
Quarter: 2025Q3

REPORT INFORMATION
  Report Type: Report from Study
  Country: US (occurrence: US)
  Receive Date: 20250416
  Receipt Date: 20250814
  Transmission Date: 20251020
  Serious: Yes (Other)
  Sender: JAZZ
  Company Number: US-JAZZ PHARMACEUTICALS-2025-US-009691

PATIENT
  Age: 42 Year
  Sex: Female

DRUGS (2)
  1. XYWAV [Suspect]
     Active Substance: CALCIUM OXYBATE\MAGNESIUM OXYBATE\POTASSIUM OXYBATE\SODIUM OXYBATE
     Indication: Narcolepsy
  2. OXYCODONE [Concomitant]
     Active Substance: OXYCODONE

REACTIONS (2)
  - Hysterectomy [Unknown]
  - Alopecia [Unknown]

NARRATIVE: CASE EVENT DATE: 20250408
